FAERS Safety Report 23133537 (Version 1)
Quarter: 2023Q4

REPORT INFORMATION
  Report Type: Spontaneous
  Country: CN (occurrence: None)
  Receive Date: 20231101
  Receipt Date: 20231101
  Transmission Date: 20240109
  Serious: Yes (Hospitalization)
  Sender: FDA-Public Use
  Company Number: 2023A246514

PATIENT
  Age: 50 Year
  Sex: Male
  Weight: 60 kg

DRUGS (4)
  1. DAPAGLIFLOZIN [Suspect]
     Active Substance: DAPAGLIFLOZIN
     Indication: Blood glucose abnormal
     Route: 048
     Dates: start: 20230801, end: 20231011
  2. ATORVASTATIN CALCIUM [Concomitant]
     Active Substance: ATORVASTATIN CALCIUM
  3. ROSUVASTATIN CALCIUM [Concomitant]
     Active Substance: ROSUVASTATIN CALCIUM
     Indication: Lipids abnormal
  4. EMPAGLIFLOZIN [Concomitant]
     Active Substance: EMPAGLIFLOZIN

REACTIONS (9)
  - Headache [Unknown]
  - Transaminases increased [Recovering/Resolving]
  - Type 2 diabetes mellitus [Unknown]
  - Furuncle [Unknown]
  - Hypoaesthesia [Unknown]
  - Pulse abnormal [Unknown]
  - Muscle strength abnormal [Unknown]
  - Blood alkaline phosphatase increased [Unknown]
  - Movement disorder [Unknown]

NARRATIVE: CASE EVENT DATE: 20231009
